FAERS Safety Report 5223097-8 (Version None)
Quarter: 2007Q1

REPORT INFORMATION
  Report Type: 
  Country: None (occurrence: None)
  Receive Date: 20070129
  Receipt Date: 20070117
  Transmission Date: 20070707
  Serious: Yes (Death, Other)
  Sender: FDA-Public Use
  Company Number: NO-PFIZER INC-2007005248

PATIENT
  Sex: Male

DRUGS (9)
  1. PREDNISOLONE [Suspect]
     Indication: PEMPHIGOID
     Dosage: DAILY DOSE:60MG
     Route: 048
     Dates: start: 20061127, end: 20061206
  2. PREDNISOLONE [Suspect]
     Dates: start: 20061214, end: 20061218
  3. PANTOPRAZOLE SODIUM [Concomitant]
     Indication: GASTROINTESTINAL ULCER
     Route: 048
  4. DUROFERON [Concomitant]
     Route: 048
  5. ZOMIG [Concomitant]
     Indication: MIGRAINE
     Route: 048
  6. IMIGRAN [Concomitant]
     Indication: MIGRAINE
     Route: 048
  7. VESICARE [Concomitant]
     Route: 048
  8. TOLTERODINE TARTRATE [Concomitant]
     Route: 048
  9. DERMOVAT [Concomitant]
     Indication: PEMPHIGOID
     Route: 061
     Dates: start: 20061212

REACTIONS (1)
  - AORTIC ANEURYSM RUPTURE [None]
